FAERS Safety Report 5197753-4 (Version None)
Quarter: 2006Q4

REPORT INFORMATION
  Report Type: 
  Country: None (occurrence: None)
  Receive Date: 20061228
  Receipt Date: 20061214
  Transmission Date: 20070319
  Serious: Yes (Other)
  Sender: FDA-Public Use
  Company Number: 2006RR-04949

PATIENT
  Age: 50 Year
  Sex: Male

DRUGS (1)
  1. ISOTRETINOIN [Suspect]
     Indication: ROSACEA
     Dosage: 20 MG, BID

REACTIONS (8)
  - ANAL FISSURE [None]
  - ERYTHEMA [None]
  - LIP DRY [None]
  - PROCTITIS [None]
  - RASH PAPULAR [None]
  - RECTAL HAEMORRHAGE [None]
  - SKIN EXFOLIATION [None]
  - THERAPY NON-RESPONDER [None]
